FAERS Safety Report 15116221 (Version 3)
Quarter: 2018Q3

REPORT INFORMATION
  Report Type: Spontaneous
  Country: US (occurrence: US)
  Receive Date: 20180706
  Receipt Date: 20180921
  Transmission Date: 20181010
  Serious: No
  Sender: FDA-Public Use
  Company Number: US-RECKITT BENCKISER HEALTHCARE INT LIMITED-RB-98814-2017

PATIENT
  Age: 13 Year
  Sex: Female

DRUGS (1)
  1. MUCINEX [Suspect]
     Active Substance: GUAIFENESIN
     Indication: PRODUCT USED FOR UNKNOWN INDICATION
     Dosage: UNK (TOOK FIRST DOSE AT 12HR IN THE AM. THEN TOOK HER 2ND DOSE OF THE DAY 5 HOURS LATER)
     Route: 065

REACTIONS (1)
  - Incorrect drug administration duration [Unknown]
